FAERS Safety Report 21294918 (Version 1)
Quarter: 2022Q3

REPORT INFORMATION
  Report Type: Spontaneous
  Country: US (occurrence: None)
  Receive Date: 20220905
  Receipt Date: 20220905
  Transmission Date: 20221027
  Serious: Yes (Other)
  Sender: FDA-Public Use
  Company Number: 2022A307442

PATIENT
  Age: 48 Year
  Sex: Female

DRUGS (8)
  1. OLAPARIB [Suspect]
     Active Substance: OLAPARIB
     Indication: Malignant oligodendroglioma
     Route: 048
  2. OLAPARIB [Suspect]
     Active Substance: OLAPARIB
     Indication: Isocitrate dehydrogenase gene mutation
     Route: 048
  3. OLAPARIB [Suspect]
     Active Substance: OLAPARIB
     Indication: Malignant oligodendroglioma
     Route: 048
  4. OLAPARIB [Suspect]
     Active Substance: OLAPARIB
     Indication: Isocitrate dehydrogenase gene mutation
     Route: 048
  5. TEMODAR [Suspect]
     Active Substance: TEMOZOLOMIDE
     Indication: Malignant oligodendroglioma
     Route: 048
  6. TEMODAR [Suspect]
     Active Substance: TEMOZOLOMIDE
     Indication: Isocitrate dehydrogenase gene mutation
     Route: 048
  7. TEMODAR [Suspect]
     Active Substance: TEMOZOLOMIDE
     Indication: Malignant oligodendroglioma
     Route: 065
  8. TEMODAR [Suspect]
     Active Substance: TEMOZOLOMIDE
     Indication: Isocitrate dehydrogenase gene mutation
     Route: 065

REACTIONS (5)
  - Product use issue [Unknown]
  - Abdominal pain [Unknown]
  - Diarrhoea [Unknown]
  - Myalgia [Unknown]
  - Arthralgia [Unknown]
